FAERS Safety Report 8223155-X (Version None)
Quarter: 2012Q1

REPORT INFORMATION
  Report Type: 
  Country: None (occurrence: None)
  Receive Date: 20120321
  Receipt Date: 20120316
  Transmission Date: 20120608
  Serious: No
  Sender: FDA-Public Use
  Company Number: US-BIOGENIDEC-2012BI009610

PATIENT
  Age: 35 Year
  Sex: Male

DRUGS (3)
  1. AVONEX [Concomitant]
     Indication: MULTIPLE SCLEROSIS
     Route: 030
  2. TYSABRI [Suspect]
     Indication: MULTIPLE SCLEROSIS
     Route: 042
     Dates: start: 20090406
  3. AVONEX [Concomitant]
     Route: 030
     Dates: start: 20001104

REACTIONS (3)
  - TOOTH LOSS [None]
  - DENTAL CARIES [None]
  - MOUTH CYST [None]
